FAERS Safety Report 14776383 (Version 2)
Quarter: 2018Q3

REPORT INFORMATION
  Report Type: Spontaneous
  Country: AU (occurrence: AU)
  Receive Date: 20180418
  Receipt Date: 20180924
  Transmission Date: 20181010
  Serious: Yes (Hospitalization, Other)
  Sender: FDA-Public Use
  Company Number: AU-BRISTOL-MYERS SQUIBB COMPANY-BMS-2018-034484

PATIENT
  Age: 9 Decade
  Sex: Male

DRUGS (1)
  1. ELIQUIS [Suspect]
     Active Substance: APIXABAN
     Indication: CEREBROVASCULAR ACCIDENT PROPHYLAXIS
     Dosage: 2.5 MG, BID
     Route: 065

REACTIONS (5)
  - Cardiac failure [Unknown]
  - Mouth haemorrhage [Unknown]
  - Peripheral swelling [Unknown]
  - Dizziness [Unknown]
  - Cyanosis [Unknown]
